FAERS Safety Report 11424696 (Version 1)
Quarter: 2015Q3

REPORT INFORMATION
  Report Type: Spontaneous
  Country: NL (occurrence: NL)
  Receive Date: 20150827
  Receipt Date: 20150827
  Transmission Date: 20151125
  Serious: Yes (Hospitalization, Other)
  Sender: FDA-Public Use
  Company Number: NL-ASTRAZENECA-2015SE77072

PATIENT
  Sex: Female

DRUGS (14)
  1. AMITRIPTYLINE [Concomitant]
     Active Substance: AMITRIPTYLINE
  2. AMOXICILLIN/CLAVULANIC ACID [Concomitant]
     Active Substance: AMOXICILLIN\CLAVULANIC ACID
     Dosage: 1X DAILY
  3. HYDROCHLOROTHIAZIDE. [Concomitant]
     Active Substance: HYDROCHLOROTHIAZIDE
  4. ZOFRAN [Concomitant]
     Active Substance: ONDANSETRON HYDROCHLORIDE
     Indication: NAUSEA
     Dosage: 8 MG ORODISPERSIBLE TABLET TO BE TAKEN 3X DAILY
  5. NEXIUM [Suspect]
     Active Substance: ESOMEPRAZOLE MAGNESIUM
     Route: 048
  6. NEXIUM [Suspect]
     Active Substance: ESOMEPRAZOLE MAGNESIUM
     Route: 048
  7. NITROFURANTOIN. [Concomitant]
     Active Substance: NITROFURANTOIN
  8. DEXAMETHASONE. [Concomitant]
     Active Substance: DEXAMETHASONE
  9. NEXIUM [Suspect]
     Active Substance: ESOMEPRAZOLE MAGNESIUM
     Dosage: SANDOZ 40 MG DAILY
     Route: 048
  10. NEXIUM [Suspect]
     Active Substance: ESOMEPRAZOLE MAGNESIUM
     Dosage: 4 DAILY
     Route: 048
  11. NEXIUM [Suspect]
     Active Substance: ESOMEPRAZOLE MAGNESIUM
     Route: 048
  12. NEXIUM [Suspect]
     Active Substance: ESOMEPRAZOLE MAGNESIUM
     Route: 048
  13. ACETAMINOPHEN AND CODEINE [Concomitant]
     Active Substance: ACETAMINOPHEN\CODEINE PHOSPHATE
  14. FENTANYL SANDOZ MATRIX [Concomitant]
     Dosage: (2 X 12 G) SANDOZ

REACTIONS (17)
  - Headache [Unknown]
  - Neuroendocrine carcinoma metastatic [Unknown]
  - Cystitis [Unknown]
  - Asthenia [Unknown]
  - Off label use [Unknown]
  - Wrong technique in product usage process [Unknown]
  - Drug dose omission [Unknown]
  - Metastasis [Unknown]
  - Back pain [Unknown]
  - Sleep disorder [Unknown]
  - Weight decreased [Unknown]
  - Abdominal pain upper [Unknown]
  - Intentional product use issue [Unknown]
  - Dysphagia [Unknown]
  - Metastases to central nervous system [Unknown]
  - Disease susceptibility [Unknown]
  - Nausea [Unknown]
